FAERS Safety Report 21564016 (Version 2)
Quarter: 2022Q4

REPORT INFORMATION
  Report Type: Spontaneous
  Country: CZ (occurrence: CZ)
  Receive Date: 20221108
  Receipt Date: 20221122
  Transmission Date: 20230113
  Serious: No
  Sender: FDA-Public Use
  Company Number: CZ-002147023-NVSC2022CZ249442

PATIENT
  Sex: Male

DRUGS (1)
  1. TAMSULOSIN HYDROCHLORIDE [Suspect]
     Active Substance: TAMSULOSIN HYDROCHLORIDE
     Indication: Psoriatic arthropathy
     Dosage: 0.4 MG (MODIFIED RELEASE 90 CAPSULES)
     Route: 065
     Dates: start: 2021

REACTIONS (3)
  - Product physical issue [Unknown]
  - Product quality issue [Unknown]
  - Drug ineffective [Recovered/Resolved]
